FAERS Safety Report 4374920-0 (Version None)
Quarter: 2004Q2

REPORT INFORMATION
  Report Type: 
  Country: None (occurrence: None)
  Receive Date: 20040604
  Receipt Date: 20040519
  Transmission Date: 20050107
  Serious: Yes (Other)
  Sender: FDA-Public Use
  Company Number: 8039

PATIENT
  Age: 48 Year
  Sex: Male

DRUGS (7)
  1. METHOTREXATE [Suspect]
     Indication: LYMPHOMA
  2. ETOPOSIDE [Suspect]
     Indication: LYMPHOMA
  3. VINCRISTINE [Suspect]
     Indication: LYMPHOMA
  4. CYCLOPHOSPHAMIDE [Suspect]
     Indication: LYMPHOMA
  5. PIRARUBICIN [Suspect]
     Indication: LYMPHOMA
  6. PROCARBAZINE [Suspect]
     Indication: LYMPHOMA
  7. PREDNISOLONE [Suspect]
     Indication: LYMPHOMA
     Dosage: 60 MG DAILY PO
     Route: 048

REACTIONS (2)
  - BLOOD LACTATE DEHYDROGENASE INCREASED [None]
  - PNEUMOCYSTIS CARINII PNEUMONIA [None]
